FAERS Safety Report 15709853 (Version 2)
Quarter: 2018Q4

REPORT INFORMATION
  Report Type: Spontaneous
  Country: US (occurrence: US)
  Receive Date: 20181211
  Receipt Date: 20181211
  Transmission Date: 20190205
  Serious: No
  Sender: FDA-Public Use
  Company Number: US-BAYER-2018-228322

PATIENT
  Age: 84 Year
  Sex: Female

DRUGS (3)
  1. BAYER ASPIRIN [Suspect]
     Active Substance: ASPIRIN
     Dosage: UNK
  2. ALEVE BACK AND MUSCLE PAIN [Suspect]
     Active Substance: NAPROXEN SODIUM
     Indication: BACK PAIN
     Dosage: UNK
     Route: 048
  3. H2 BLOCKER [CIMETIDINE HYDROCHLORIDE] [Concomitant]
     Dosage: UNK

REACTIONS (3)
  - Back pain [Unknown]
  - Drug ineffective [Unknown]
  - Drug ineffective [None]
